FAERS Safety Report 21944529 (Version 2)
Quarter: 2023Q1

REPORT INFORMATION
  Report Type: Other
  Country: GB (occurrence: GB)
  Receive Date: 20230202
  Receipt Date: 20230220
  Transmission Date: 20230417
  Serious: Yes (Other)
  Sender: FDA-Public Use
  Company Number: GB-CELLTRION INC.-2023GB002222

PATIENT

DRUGS (4)
  1. RITUXIMAB [Suspect]
     Active Substance: RITUXIMAB
     Indication: Product used for unknown indication
     Dosage: UNK
     Dates: start: 20220810, end: 20220825
  2. MYCOPHENOLATE MOFETIL [Suspect]
     Active Substance: MYCOPHENOLATE MOFETIL
     Indication: Product used for unknown indication
     Dosage: UNK
     Dates: start: 20220929
  3. EPREX [Suspect]
     Active Substance: ERYTHROPOIETIN
     Indication: Nephrogenic anaemia
     Dosage: 4000 INTERNATIONAL UNIT, 0.5 WEEK
     Route: 058
     Dates: start: 20221024, end: 20221103
  4. DAPSONE [Suspect]
     Active Substance: DAPSONE
     Indication: Product used for unknown indication
     Dosage: UNK
     Dates: start: 20220929, end: 20221102

REACTIONS (2)
  - Aplasia pure red cell [Unknown]
  - Anti-erythropoietin antibody negative [Recovered/Resolved]

NARRATIVE: CASE EVENT DATE: 20230112
